FAERS Safety Report 11146746 (Version 3)
Quarter: 2015Q3

REPORT INFORMATION
  Report Type: Spontaneous
  Country: DE (occurrence: DE)
  Receive Date: 20150528
  Receipt Date: 20150702
  Transmission Date: 20151125
  Serious: Yes (Other)
  Sender: FDA-Public Use
  Company Number: GXKR2015DE002553

PATIENT

DRUGS (7)
  1. PREDNISOLONE. [Suspect]
     Active Substance: PREDNISOLONE
     Indication: MATERNAL EXPOSURE BEFORE PREGNANCY
     Dosage: BEACOPP, 7 CYCLES
     Route: 064
  2. BLEOMYCIN [Suspect]
     Active Substance: BLEOMYCIN SULFATE
     Indication: MATERNAL EXPOSURE BEFORE PREGNANCY
     Dosage: BEACOPP, 7 CYCLES
     Route: 064
  3. NATULAN [Suspect]
     Active Substance: PROCARBAZINE HYDROCHLORIDE
     Indication: MATERNAL EXPOSURE BEFORE PREGNANCY
     Dosage: BEACOPP, 7 CYCLES
     Route: 064
  4. VINCRISTINE [Suspect]
     Active Substance: VINCRISTINE
     Indication: MATERNAL EXPOSURE BEFORE PREGNANCY
     Dosage: BEACOPP, 7 CYCLES
     Route: 064
  5. ADRIAMYCIN [Suspect]
     Active Substance: DOXORUBICIN HYDROCHLORIDE
     Indication: MATERNAL EXPOSURE BEFORE PREGNANCY
     Dosage: BEACOPP, 7 CYCLES
     Route: 064
  6. ETOPOSIDE. [Suspect]
     Active Substance: ETOPOSIDE
     Indication: MATERNAL EXPOSURE BEFORE PREGNANCY
     Dosage: BEACOPP, 7 CYCLES
     Route: 064
  7. CYCLOPHOSPHAMIDE. [Suspect]
     Active Substance: CYCLOPHOSPHAMIDE
     Indication: MATERNAL EXPOSURE BEFORE PREGNANCY
     Dosage: BEACOPP, 7 CYCLES
     Route: 064

REACTIONS (1)
  - Heart disease congenital [Not Recovered/Not Resolved]

NARRATIVE: CASE EVENT DATE: 20150220
